FAERS Safety Report 19771366 (Version 1)
Quarter: 2021Q3

REPORT INFORMATION
  Report Type: Spontaneous
  Country: US (occurrence: US)
  Receive Date: 20210901
  Receipt Date: 20210901
  Transmission Date: 20211014
  Serious: No
  Sender: FDA-Public Use
  Company Number: None

PATIENT
  Age: 38 Year
  Sex: Female
  Weight: 54 kg

DRUGS (1)
  1. BUPRENORPHINE AND NALOXONE [Suspect]
     Active Substance: BUPRENORPHINE HYDROCHLORIDE\NALOXONE HYDROCHLORIDE
     Indication: DEPENDENCE
     Dosage: ?          QUANTITY:1 FILM;?
     Route: 060
     Dates: start: 20210101, end: 20210901

REACTIONS (9)
  - Withdrawal syndrome [None]
  - Product quality issue [None]
  - Hyperhidrosis [None]
  - Manufacturing issue [None]
  - Dizziness [None]
  - Fatigue [None]
  - Nausea [None]
  - Chest pain [None]
  - Asthenia [None]

NARRATIVE: CASE EVENT DATE: 20210110
